FAERS Safety Report 12859212 (Version 1)
Quarter: 2016Q4

REPORT INFORMATION
  Report Type: Spontaneous
  Country: KE (occurrence: KE)
  Receive Date: 20161018
  Receipt Date: 20161018
  Transmission Date: 20170207
  Serious: Yes (Other)
  Sender: FDA-Public Use
  Company Number: KE-PFIZER INC-2016483237

PATIENT
  Age: 29 Year
  Sex: Female

DRUGS (1)
  1. DEPO-PROVERA [Suspect]
     Active Substance: MEDROXYPROGESTERONE ACETATE
     Indication: CONTRACEPTION
     Dosage: UNK, SINGLE
     Route: 030
     Dates: start: 19780913

REACTIONS (1)
  - Benign intracranial hypertension [Recovered/Resolved]

NARRATIVE: CASE EVENT DATE: 1978
